FAERS Safety Report 17016274 (Version 2)
Quarter: 2019Q4

REPORT INFORMATION
  Report Type: Spontaneous
  Country: BR (occurrence: BR)
  Receive Date: 20191111
  Receipt Date: 20191219
  Transmission Date: 20200122
  Serious: Yes (Hospitalization, Other)
  Sender: FDA-Public Use
  Company Number: NVSC2019BR027874

PATIENT
  Age: 30 Year
  Sex: Female
  Weight: 62 kg

DRUGS (1)
  1. GILENYA [Suspect]
     Active Substance: FINGOLIMOD HYDROCHLORIDE
     Indication: MULTIPLE SCLEROSIS
     Dosage: 1 DF, QOD (AT NIGHT)
     Route: 048
     Dates: start: 201605, end: 20191009

REACTIONS (11)
  - Syncope [Unknown]
  - Mental fatigue [Unknown]
  - Anaemia [Unknown]
  - Gastrointestinal haemorrhage [Unknown]
  - Heart rate increased [Unknown]
  - Fatigue [Unknown]
  - Haematochezia [Unknown]
  - Gastritis [Unknown]
  - Haematemesis [Unknown]
  - Gastric ulcer [Unknown]
  - Inappropriate schedule of product administration [Unknown]

NARRATIVE: CASE EVENT DATE: 20190816
